FAERS Safety Report 22860280 (Version 3)
Quarter: 2023Q4

REPORT INFORMATION
  Report Type: Spontaneous
  Country: US (occurrence: US)
  Receive Date: 20230824
  Receipt Date: 20231105
  Transmission Date: 20240110
  Serious: Yes (Other)
  Sender: FDA-Public Use
  Company Number: US-PFIZER INC-PV202300142892

PATIENT
  Age: 75 Year
  Sex: Female
  Weight: 35.828 kg

DRUGS (1)
  1. XELJANZ [Suspect]
     Active Substance: TOFACITINIB CITRATE
     Dosage: 5 MG

REACTIONS (4)
  - Rheumatoid arthritis [Unknown]
  - COVID-19 pneumonia [Unknown]
  - Malaise [Unknown]
  - Depressed mood [Unknown]
